FAERS Safety Report 8481864-1 (Version None)
Quarter: 2012Q3

REPORT INFORMATION
  Report Type: 
  Country: None (occurrence: None)
  Receive Date: 20120702
  Receipt Date: 20120625
  Transmission Date: 20120928
  Serious: Yes (Other)
  Sender: FDA-Public Use
  Company Number: GB-PFIZER INC-2012151729

PATIENT
  Age: 76 Year
  Sex: Female

DRUGS (9)
  1. DIAMOX [Concomitant]
     Dosage: 250 MG, 4X/DAY
     Route: 048
  2. ALPHAGAN [Concomitant]
     Dosage: TWICE DAILY
  3. IOPIDINE [Suspect]
     Dosage: 0.5 %, 3X/DAY
     Route: 047
  4. CHLORAMPHENICOL SODIUM SUCCINATE [Suspect]
     Dosage: FOUR TIMES DAILY
  5. BIMATOPROST AND TIMOLOL MALEATE [Concomitant]
     Dosage: ONCE DAILY
  6. PREDNISOLONE SODIUM PHOSPHATE [Concomitant]
     Dosage: 0.5% MINIMS 6 TIMES DAILY
  7. LOTEMAX [Concomitant]
     Dosage: TWICE DAILY
  8. MAXIDEX [Suspect]
     Dosage: 0.1 %, 4X/DAY
     Route: 047
  9. TIMOLOL MALEATE [Concomitant]
     Dosage: 0.25 %, 2X/DAY
     Route: 047

REACTIONS (5)
  - TRANSPLANT FAILURE [None]
  - CORNEAL DECOMPENSATION [None]
  - CORNEAL THICKENING [None]
  - TRANSPLANT REJECTION [None]
  - INTRAOCULAR PRESSURE INCREASED [None]
